FAERS Safety Report 18554766 (Version 1)
Quarter: 2020Q4

REPORT INFORMATION
  Report Type: Spontaneous
  Country: DK (occurrence: DK)
  Receive Date: 20201127
  Receipt Date: 20201127
  Transmission Date: 20210114
  Serious: Yes (Disabling)
  Sender: FDA-Public Use
  Company Number: DK-SAMSUNG BIOEPIS-SB-2020-35379

PATIENT
  Age: 65 Year
  Sex: Male

DRUGS (1)
  1. BENEPALI [Suspect]
     Active Substance: ETANERCEPT
     Indication: ANKYLOSING SPONDYLITIS
     Route: 058
     Dates: start: 20160609, end: 201810

REACTIONS (2)
  - Dyspnoea exertional [Not Recovered/Not Resolved]
  - Granulomatous pneumonitis [Not Recovered/Not Resolved]

NARRATIVE: CASE EVENT DATE: 201712
